FAERS Safety Report 23348672 (Version 2)
Quarter: 2024Q1

REPORT INFORMATION
  Report Type: Spontaneous
  Country: US (occurrence: None)
  Receive Date: 20231229
  Receipt Date: 20240223
  Transmission Date: 20240409
  Serious: Yes (Other)
  Sender: FDA-Public Use
  Company Number: 2023A291228

PATIENT

DRUGS (1)
  1. BREZTRI [Suspect]
     Active Substance: BUDESONIDE\FORMOTEROL\GLYCOPYRROLATE
     Route: 055

REACTIONS (5)
  - Dyspnoea [Unknown]
  - Macular degeneration [Unknown]
  - Product taste abnormal [Unknown]
  - Device delivery system issue [Unknown]
  - Product dose omission issue [Unknown]
